FAERS Safety Report 22201036 (Version 1)
Quarter: 2023Q2

REPORT INFORMATION
  Report Type: Report from Study
  Country: US (occurrence: US)
  Receive Date: 20230412
  Receipt Date: 20230412
  Transmission Date: 20230722
  Serious: No
  Sender: FDA-Public Use
  Company Number: US-BIOVITRUM-2023-US-007582

PATIENT
  Age: 51 Year
  Sex: Female

DRUGS (1)
  1. KINERET [Suspect]
     Active Substance: ANAKINRA
     Indication: Autoinflammatory disease
     Dosage: DAILY
     Route: 058
     Dates: start: 20220207

REACTIONS (5)
  - Intentional product misuse [Unknown]
  - Product dose omission issue [Unknown]
  - Insurance issue [Unknown]
  - Autoinflammatory disease [Unknown]
  - Condition aggravated [Unknown]

NARRATIVE: CASE EVENT DATE: 20220207
